FAERS Safety Report 17434945 (Version 3)
Quarter: 2020Q1

REPORT INFORMATION
  Report Type: Spontaneous
  Country: BR (occurrence: BR)
  Receive Date: 20200219
  Receipt Date: 20200316
  Transmission Date: 20200409
  Serious: No
  Sender: FDA-Public Use
  Company Number: BR-PFIZER INC-2020071523

PATIENT
  Age: 85 Year
  Sex: Female
  Weight: 52.5 kg

DRUGS (8)
  1. FRONTAL [Suspect]
     Active Substance: ALPRAZOLAM
     Indication: ANXIOLYTIC THERAPY
     Dosage: 1 MG, IN THE MORNING
     Route: 048
     Dates: start: 202001
  2. DONAREN [Concomitant]
     Active Substance: TRAZODONE HYDROCHLORIDE
     Dosage: UNK
  3. PROLOPA [Concomitant]
     Active Substance: BENSERAZIDE\LEVODOPA
     Indication: BALANCE DISORDER
  4. FRONTAL [Suspect]
     Active Substance: ALPRAZOLAM
     Dosage: 2 MG, AT NIGHT
     Route: 048
     Dates: start: 202001
  5. PROLOPA [Concomitant]
     Active Substance: BENSERAZIDE\LEVODOPA
     Indication: TREMOR
     Dosage: UNK
  6. COMTAN [Concomitant]
     Active Substance: ENTACAPONE
     Indication: TREMOR
     Dosage: 200 MG, 2X/DAY
  7. DON [Concomitant]
     Indication: MEMORY IMPAIRMENT
     Dosage: UNK
  8. COMTAN [Concomitant]
     Active Substance: ENTACAPONE
     Indication: BALANCE DISORDER

REACTIONS (6)
  - Tremor [Not Recovered/Not Resolved]
  - Hypersomnia [Not Recovered/Not Resolved]
  - Fatigue [Not Recovered/Not Resolved]
  - Dizziness postural [Not Recovered/Not Resolved]
  - Gait disturbance [Not Recovered/Not Resolved]
  - Balance disorder [Not Recovered/Not Resolved]
